FAERS Safety Report 25269746 (Version 1)
Quarter: 2025Q2

REPORT INFORMATION
  Report Type: Spontaneous
  Country: US (occurrence: None)
  Receive Date: 20250505
  Receipt Date: 20250505
  Transmission Date: 20250717
  Serious: Yes (Hospitalization)
  Sender: FDA-CTU
  Company Number: None

PATIENT
  Age: 70 Year
  Sex: Male

DRUGS (12)
  1. LENALIDOMIDE [Suspect]
     Active Substance: LENALIDOMIDE
     Indication: Plasma cell myeloma
     Dosage: FREQUENCY : DAILY;?
     Route: 048
     Dates: start: 20241205
  2. DEXAMETHASONE [Suspect]
     Active Substance: DEXAMETHASONE
  3. ACYCLOVIR [Concomitant]
     Active Substance: ACYCLOVIR
  4. ALBUTEROL AER HFA [Concomitant]
  5. ALPRAZOLAM TAB [Concomitant]
  6. ATORVASTATIN [Concomitant]
     Active Substance: ATORVASTATIN
  7. DARZALEX SOL FASPRO [Concomitant]
  8. DEXAMETH PHO INJ [Concomitant]
  9. DEXAMETHASON TAB [Concomitant]
  10. ELIQUIS [Concomitant]
     Active Substance: APIXABAN
  11. LEVOTHYROXIN TAB [Concomitant]
  12. LOMOTIL TAB [Concomitant]

REACTIONS (2)
  - Pulmonary embolism [None]
  - Electrocardiogram ST-T segment abnormal [None]

NARRATIVE: CASE EVENT DATE: 20250305
